FAERS Safety Report 12670710 (Version 1)
Quarter: 2016Q3

REPORT INFORMATION
  Report Type: Report from Study
  Country: US (occurrence: US)
  Receive Date: 20160822
  Receipt Date: 20160822
  Transmission Date: 20161109
  Serious: Yes (Other)
  Sender: FDA-Public Use
  Company Number: US-CIPLA LTD.-2016US17193

PATIENT

DRUGS (1)
  1. ALENDRONATE [Suspect]
     Active Substance: ALENDRONATE SODIUM
     Indication: FIBROUS DYSPLASIA OF BONE
     Dosage: UNK, EACH DOSE IN THE MORNING PRIOR TO EATING, WITH A FULL GLASS OF WATER
     Route: 065

REACTIONS (1)
  - Fracture [Unknown]
